FAERS Safety Report 22020907 (Version 2)
Quarter: 2023Q1

REPORT INFORMATION
  Report Type: Spontaneous
  Country: JP (occurrence: JP)
  Receive Date: 20230222
  Receipt Date: 20230328
  Transmission Date: 20230417
  Serious: Yes (Other)
  Sender: FDA-Public Use
  Company Number: JP-JNJFOC-20230248475

PATIENT
  Age: 78 Year
  Sex: Male

DRUGS (1)
  1. ZYTIGA [Suspect]
     Active Substance: ABIRATERONE ACETATE
     Indication: Hormone-dependent prostate cancer
     Dosage: DOSE UNKNOWN
     Route: 048
     Dates: start: 202211, end: 2023

REACTIONS (3)
  - Carcinoembryonic antigen increased [Unknown]
  - Prostatic specific antigen increased [Not Recovered/Not Resolved]
  - Carbohydrate antigen 19-9 increased [Unknown]

NARRATIVE: CASE EVENT DATE: 20230101
